FAERS Safety Report 14127374 (Version 1)
Quarter: 2017Q4

REPORT INFORMATION
  Report Type: Spontaneous
  Country: US (occurrence: US)
  Receive Date: 20171026
  Receipt Date: 20171026
  Transmission Date: 20180321
  Serious: No
  Sender: FDA-Public Use
  Company Number: US-TEVA-731553ACC

PATIENT
  Age: 85 Year
  Sex: Male
  Weight: 86.26 kg

DRUGS (1)
  1. CARBIDOPA AND LEVODOPA [Suspect]
     Active Substance: CARBIDOPA\LEVODOPA
     Indication: PARKINSON^S DISEASE
     Dosage: 25/250MG

REACTIONS (5)
  - Dysphagia [Unknown]
  - Disturbance in attention [Unknown]
  - Fatigue [Unknown]
  - Drooling [Unknown]
  - Mobility decreased [Unknown]
